FAERS Safety Report 6182152-9 (Version None)
Quarter: 2009Q2

REPORT INFORMATION
  Report Type: 
  Country: None (occurrence: None)
  Receive Date: 20090507
  Receipt Date: 20090427
  Transmission Date: 20091009
  Serious: Yes (Other)
  Sender: FDA-Public Use
  Company Number: US-JNJFOC-20071102378

PATIENT
  Sex: Female
  Weight: 54.43 kg

DRUGS (4)
  1. REMICADE [Suspect]
     Indication: COLITIS ULCERATIVE
     Route: 042
  2. REMICADE [Suspect]
     Indication: CROHN'S DISEASE
     Dosage: TO THE PRESENT
     Route: 042
  3. ASACOL [Concomitant]
     Indication: COLITIS ULCERATIVE
     Dosage: TO THE PRESENT
     Route: 065
  4. PURINETHOL [Concomitant]
     Indication: COLITIS ULCERATIVE
     Dosage: TO THE PRESENT
     Route: 065

REACTIONS (5)
  - ANTINUCLEAR ANTIBODY POSITIVE [None]
  - ARTHRALGIA [None]
  - DNA ANTIBODY POSITIVE [None]
  - FIBROUS HISTIOCYTOMA [None]
  - SWELLING [None]
